FAERS Safety Report 7490086 (Version 4)
Quarter: 2015Q1

REPORT INFORMATION
  Report Type: Spontaneous
  Country: US (occurrence: US)
  Receive Date: 20100720
  Receipt Date: 20150128
  Transmission Date: 20150721
  Serious: Yes (Hospitalization, Disabling, Other)
  Sender: FDA-Public Use
  Company Number: US-BAYER-201028176NA

PATIENT
  Age: 24 Year
  Sex: Female
  Weight: 54 kg

DRUGS (28)
  1. DIPHENHYDRAMINE [Concomitant]
     Active Substance: DIPHENHYDRAMINE
  2. INSULIN ASPART [Concomitant]
     Active Substance: INSULIN ASPART
  3. CEPACOL [Concomitant]
     Active Substance: BENZOCAINE
  4. COLACE [Concomitant]
     Active Substance: DOCUSATE SODIUM
  5. VERAPAMIL [Concomitant]
     Active Substance: VERAPAMIL HYDROCHLORIDE
     Dosage: 200 MG, QD
     Dates: start: 20080201, end: 2008
  6. MILK OF MAGNESIA [Concomitant]
     Active Substance: MAGNESIUM HYDROXIDE
  7. SENNA [Concomitant]
     Active Substance: SENNA LEAF\SENNOSIDES\SENNOSIDES A AND B
  8. ESOMEPRAZOLE [Concomitant]
     Active Substance: ESOMEPRAZOLE
  9. TRIMETHOBENZAMIDE [Concomitant]
     Active Substance: TRIMETHOBENZAMIDE
     Dosage: UNK
     Dates: end: 20080806
  10. NEXIUM [Concomitant]
     Active Substance: ESOMEPRAZOLE MAGNESIUM
  11. LEXAPRO [Concomitant]
     Active Substance: ESCITALOPRAM OXALATE
     Dosage: 10 MG, UNK
     Route: 048
     Dates: start: 20080917
  12. DOCUSATE [Concomitant]
     Active Substance: DOCUSATE
  13. RITALIN [Concomitant]
     Active Substance: METHYLPHENIDATE HYDROCHLORIDE
  14. TOPAMAX [Concomitant]
     Active Substance: TOPIRAMATE
     Dosage: 50 MG, BID
     Dates: start: 20080307
  15. PROMETHAZINE [Concomitant]
     Active Substance: PROMETHAZINE\PROMETHAZINE HYDROCHLORIDE
  16. IBUPROFEN. [Concomitant]
     Active Substance: IBUPROFEN
  17. YAZ [Suspect]
     Active Substance: DROSPIRENONE\ETHINYL ESTRADIOL
     Indication: CONTRACEPTION
     Route: 048
     Dates: start: 200712, end: 20080713
  18. VITAMINS NOS [Concomitant]
     Active Substance: VITAMINS
  19. DIAZEPAM. [Concomitant]
     Active Substance: DIAZEPAM
     Dosage: 5 MG, UNK
     Route: 048
     Dates: start: 20080326, end: 20080328
  20. MAALOX ANTACID [Concomitant]
     Active Substance: ALUMINUM HYDROXIDE\DIMETHICONE\MAGNESIUM HYDROXIDE
  21. MEROPENEM. [Concomitant]
     Active Substance: MEROPENEM
  22. TOPAMAX [Concomitant]
     Active Substance: TOPIRAMATE
     Dosage: 50 MG, UNK
     Route: 048
     Dates: start: 20080407
  23. BISACODYL. [Concomitant]
     Active Substance: BISACODYL
  24. MOTRIN [Concomitant]
     Active Substance: IBUPROFEN
  25. TRAZODONE [Concomitant]
     Active Substance: TRAZODONE HYDROCHLORIDE
  26. METHYLIN [Concomitant]
     Active Substance: METHYLPHENIDATE HYDROCHLORIDE
     Dosage: 5 MG, UNK
     Route: 048
     Dates: start: 20080917
  27. AMANTADINE [Concomitant]
     Active Substance: AMANTADINE
     Dosage: 100 MG, UNK
     Route: 048
     Dates: start: 20080917
  28. ACETAMINOPHEN. [Concomitant]
     Active Substance: ACETAMINOPHEN

REACTIONS (10)
  - Cerebral haemorrhage [None]
  - Cerebral infarction [None]
  - Speech disorder [None]
  - Deep vein thrombosis [None]
  - Mental status changes [None]
  - Carotid artery thrombosis [Unknown]
  - Hypokalaemia [None]
  - Cerebrovascular accident [Unknown]
  - Brain oedema [None]
  - Hemiparesis [None]

NARRATIVE: CASE EVENT DATE: 200807
